FAERS Safety Report 10602205 (Version 1)
Quarter: 2014Q4

REPORT INFORMATION
  Report Type: Spontaneous
  Country: GB (occurrence: GB)
  Receive Date: 20141124
  Receipt Date: 20141124
  Transmission Date: 20150529
  Serious: Yes (Life-Threatening)
  Sender: FDA-Public Use
  Company Number: GB-WATSON-2014-25016

PATIENT
  Age: 6 Year
  Sex: Male
  Weight: 24 kg

DRUGS (3)
  1. DIAZEPAM (UNKNOWN) [Suspect]
     Active Substance: DIAZEPAM
     Indication: PRODUCT USED FOR UNKNOWN INDICATION
     Dosage: 5 ML, TOTAL
     Route: 065
     Dates: start: 20141030
  2. SALBUTAMOL [Concomitant]
     Active Substance: ALBUTEROL
     Indication: PRODUCT USED FOR UNKNOWN INDICATION
     Dosage: UNK
     Route: 065
     Dates: start: 20140730
  3. SODIUM VALPROATE [Concomitant]
     Active Substance: VALPROATE SODIUM
     Indication: PRODUCT USED FOR UNKNOWN INDICATION
     Dosage: UNK
     Route: 065
     Dates: start: 20140730

REACTIONS (1)
  - Respiratory arrest [Recovered/Resolved]

NARRATIVE: CASE EVENT DATE: 20141030
